FAERS Safety Report 7072719-8 (Version None)
Quarter: 2010Q4

REPORT INFORMATION
  Report Type: 
  Country: None (occurrence: None)
  Receive Date: 20101029
  Receipt Date: 20100309
  Transmission Date: 20110411
  Serious: No
  Sender: FDA-Public Use
  Company Number: A0848033A

PATIENT
  Age: 79 Year
  Sex: Female

DRUGS (3)
  1. ADVAIR DISKUS 100/50 [Suspect]
     Indication: CHRONIC OBSTRUCTIVE PULMONARY DISEASE
     Dosage: 1PUFF TWICE PER DAY
     Route: 055
     Dates: start: 20060301, end: 20100217
  2. SYNTHROID [Concomitant]
  3. SPIRIVA [Concomitant]

REACTIONS (4)
  - DECREASED ACTIVITY [None]
  - DRUG INEFFECTIVE [None]
  - DYSPNOEA [None]
  - RESPIRATORY DISORDER [None]
